FAERS Safety Report 18999296 (Version 1)
Quarter: 2021Q1

REPORT INFORMATION
  Report Type: Spontaneous
  Country: US (occurrence: US)
  Receive Date: 20210312
  Receipt Date: 20210312
  Transmission Date: 20210420
  Serious: Yes (Death, Hospitalization, Other)
  Sender: FDA-Public Use
  Company Number: US-AUROBINDO-AUR-APL-2019-085641

PATIENT
  Age: 43 Year
  Sex: Female
  Weight: 79.38 kg

DRUGS (6)
  1. DIAZEPAM. [Suspect]
     Active Substance: DIAZEPAM
     Indication: PRODUCT USED FOR UNKNOWN INDICATION
     Dosage: 10 MILLIGRAM, FOUR TIMES/DAY
     Route: 065
  2. ALPRAZOLAM. [Suspect]
     Active Substance: ALPRAZOLAM
     Indication: PRODUCT USED FOR UNKNOWN INDICATION
     Dosage: 2 MILLIGRAM, 3 TIMES A DAY
     Route: 065
  3. ZIPRASIDONE. [Concomitant]
     Active Substance: ZIPRASIDONE
     Indication: PRODUCT USED FOR UNKNOWN INDICATION
     Dosage: 20 MILLIGRAM
     Route: 065
  4. ZOLPIDEM TABLET [Suspect]
     Active Substance: ZOLPIDEM TARTRATE
     Indication: INSOMNIA
     Dosage: 10 MILLIGRAM
     Route: 065
  5. CITALOPRAM [Concomitant]
     Active Substance: CITALOPRAM HYDROBROMIDE
     Indication: PRODUCT USED FOR UNKNOWN INDICATION
     Dosage: 2 MILLIGRAM
     Route: 065
  6. ZOLPIDEM TABLET [Suspect]
     Active Substance: ZOLPIDEM TARTRATE
     Dosage: 60 MILLIGRAM
     Route: 065

REACTIONS (19)
  - Disorientation [Fatal]
  - Tachycardia [Fatal]
  - Abnormal behaviour [Fatal]
  - Blood pressure increased [Fatal]
  - Hallucination, visual [Fatal]
  - Drug abuse [Fatal]
  - Cyanosis [Fatal]
  - Mental status changes [Fatal]
  - Autonomic nervous system imbalance [Fatal]
  - Overdose [Fatal]
  - Hallucination, auditory [Fatal]
  - Myoclonus [Fatal]
  - Posture abnormal [Fatal]
  - Body temperature increased [Fatal]
  - Drug withdrawal syndrome [Fatal]
  - Psychogenic seizure [Fatal]
  - Respiration abnormal [Fatal]
  - Cardiomyopathy [Fatal]
  - Symptom masked [Fatal]
